FAERS Safety Report 15486225 (Version 3)
Quarter: 2018Q4

REPORT INFORMATION
  Report Type: Report from Study
  Country: US (occurrence: US)
  Receive Date: 20181011
  Receipt Date: 20181122
  Transmission Date: 20190205
  Serious: Yes (Other)
  Sender: FDA-Public Use
  Company Number: US-ALEXION PHARMACEUTICALS INC.-A201813183

PATIENT
  Sex: Female

DRUGS (1)
  1. STRENSIQ [Suspect]
     Active Substance: ASFOTASE ALFA
     Indication: HYPOPHOSPHATASIA
     Dosage: UNK
     Route: 058

REACTIONS (7)
  - Blood parathyroid hormone increased [Unknown]
  - Nephrolithiasis [Not Recovered/Not Resolved]
  - Vitamin D increased [Unknown]
  - Feeling hot [Recovered/Resolved]
  - Abdominal pain lower [Unknown]
  - Blood urine present [Unknown]
  - Lipodystrophy acquired [Unknown]

NARRATIVE: CASE EVENT DATE: 20181116
